FAERS Safety Report 10619605 (Version 1)
Quarter: 2014Q4

REPORT INFORMATION
  Report Type: Spontaneous
  Country: TW (occurrence: None)
  Receive Date: 20141128
  Receipt Date: 20141128
  Transmission Date: 20150529
  Serious: Yes (Hospitalization)
  Sender: FDA-Public Use
  Company Number: IMP_08233_2014

PATIENT
  Age: 79 Year
  Sex: Female

DRUGS (6)
  1. ALBUTEROL SULFATE. [Suspect]
     Active Substance: ALBUTEROL SULFATE
     Indication: ASTHMA
     Route: 048
  2. IPRATROPIUM BROMIDE. [Suspect]
     Active Substance: IPRATROPIUM BROMIDE
     Indication: ASTHMA
     Dosage: TID, (NEBULIZED) RESPIRATORY (INHALATION)
  3. AMIODARONE [Concomitant]
     Active Substance: AMIODARONE
  4. TERBUTALINE (TERBUTALINE) NEBULISER SOLUTION, 5MG/2ML [Suspect]
     Active Substance: TERBUTALINE
     Indication: ASTHMA
     Dosage: (NEBULIZED) RESPIRATORY (INHALATION)
     Route: 055
  5. MEXILETINE [Concomitant]
     Active Substance: MEXILETINE
  6. BISOPROLOL [Concomitant]
     Active Substance: BISOPROLOL

REACTIONS (3)
  - Ventricular tachycardia [None]
  - Respiratory failure [None]
  - Palpitations [None]
